FAERS Safety Report 11578373 (Version 1)
Quarter: 2015Q3

REPORT INFORMATION
  Report Type: Spontaneous
  Country: US (occurrence: US)
  Receive Date: 20150916
  Receipt Date: 20150916
  Transmission Date: 20151125
  Serious: Yes (Hospitalization)
  Sender: FDA-Public Use
  Company Number: US-ELI_LILLY_AND_COMPANY-US201307001400

PATIENT
  Sex: Female
  Weight: 85.26 kg

DRUGS (1)
  1. HUMALOG [Suspect]
     Active Substance: INSULIN LISPRO
     Route: 058

REACTIONS (3)
  - Blood glucose decreased [Recovering/Resolving]
  - Incoherent [Unknown]
  - Blood glucose increased [Recovered/Resolved]
